FAERS Safety Report 4470445-2 (Version None)
Quarter: 2004Q4

REPORT INFORMATION
  Report Type: 
  Country: None (occurrence: None)
  Receive Date: 20041005
  Receipt Date: 20041005
  Transmission Date: 20050328
  Serious: Yes (Hospitalization)
  Sender: FDA-Public Use
  Company Number: None

PATIENT
  Age: 41 Year
  Sex: Female
  Weight: 89.8 kg

DRUGS (3)
  1. ORTHO EVRA [Suspect]
     Indication: HORMONE REPLACEMENT THERAPY
     Dosage: WEEKLY TOPICAL
     Route: 061
  2. VICOCIN [Concomitant]
  3. KEFLEX [Concomitant]

REACTIONS (2)
  - POST PROCEDURAL COMPLICATION [None]
  - THROMBOSIS [None]
